FAERS Safety Report 5709876-9 (Version None)
Quarter: 2008Q2

REPORT INFORMATION
  Report Type: 
  Country: None (occurrence: None)
  Receive Date: 20080418
  Receipt Date: 20080125
  Transmission Date: 20081010
  Serious: No
  Sender: FDA-Public Use
  Company Number: US-ASTRAZENECA-2005UW19227

PATIENT
  Age: 85 Year
  Sex: Female
  Weight: 68 kg

DRUGS (4)
  1. TOPROL-XL [Suspect]
     Indication: HYPERTENSION
     Route: 048
     Dates: start: 20000101
  2. TOPROL-XL [Suspect]
     Route: 048
     Dates: start: 20000101
  3. ZESTRIL [Concomitant]
  4. PLAVIX [Concomitant]

REACTIONS (10)
  - ABDOMINAL DISTENSION [None]
  - ABNORMAL FAECES [None]
  - BLOOD PRESSURE ABNORMAL [None]
  - BLOOD PRESSURE DECREASED [None]
  - COGNITIVE DISORDER [None]
  - DEPRESSED LEVEL OF CONSCIOUSNESS [None]
  - DRUG INEFFECTIVE [None]
  - HAEMORRHOIDAL HAEMORRHAGE [None]
  - HALLUCINATION [None]
  - WEIGHT INCREASED [None]
